FAERS Safety Report 8142516-0 (Version None)
Quarter: 2012Q1

REPORT INFORMATION
  Report Type: 
  Country: None (occurrence: None)
  Receive Date: 20120216
  Receipt Date: 20111117
  Transmission Date: 20120608
  Serious: No
  Sender: FDA-Public Use
  Company Number: US-ASTRAZENECA-2011SE70100

PATIENT
  Age: 48 Year
  Sex: Male

DRUGS (8)
  1. COREG [Concomitant]
  2. NOVOLOG MIX 70/30 [Concomitant]
  3. PROMOCENIDE [Concomitant]
  4. LANTUS [Concomitant]
  5. SIMVASTATIN [Concomitant]
  6. CLONITINE [Concomitant]
  7. BRILINTA [Suspect]
     Route: 048
     Dates: start: 20111102, end: 20111112
  8. ISOSORBIDE DINITRATE [Concomitant]

REACTIONS (2)
  - ANXIETY [None]
  - DYSPNOEA [None]
